FAERS Safety Report 4700522-X (Version None)
Quarter: 2005Q2

REPORT INFORMATION
  Report Type: 
  Country: None (occurrence: None)
  Receive Date: 20050624
  Receipt Date: 20050620
  Transmission Date: 20051028
  Serious: Yes (Hospitalization)
  Sender: FDA-Public Use
  Company Number: DEWYE757120JUN05

PATIENT
  Age: 41 Year
  Sex: Female

DRUGS (2)
  1. TREVILOR RETARD (VENLAFAXINE HYDROCHLORIDE, CAPSULE, EXTENDED RELEASE) [Suspect]
     Dosage: ORAL
     Route: 048
     Dates: start: 20050601, end: 20050601
  2. DILTIAZEM [Suspect]
     Dosage: ORAL
     Route: 048
     Dates: start: 20050601, end: 20050601

REACTIONS (5)
  - BLOOD PRESSURE SYSTOLIC DECREASED [None]
  - INTENTIONAL MISUSE [None]
  - OVERDOSE [None]
  - RESPIRATORY ACIDOSIS [None]
  - SOMNOLENCE [None]
